FAERS Safety Report 4765486-1 (Version None)
Quarter: 2005Q3

REPORT INFORMATION
  Report Type: 
  Country: None (occurrence: None)
  Receive Date: 20050908
  Receipt Date: 20050826
  Transmission Date: 20060218
  Serious: Yes (Hospitalization)
  Sender: FDA-Public Use
  Company Number: 2005121051

PATIENT
  Sex: Male
  Weight: 1 kg

DRUGS (4)
  1. CLINDAMYCIN PHOSPHATE [Suspect]
     Indication: STAPHYLOCOCCAL SEPSIS
     Dosage: INTRAVENOUS
     Route: 042
  2. FLUCLOXACILLIN (FLUCLOXACILLIN) [Suspect]
     Indication: STAPHYLOCOCCAL SEPSIS
  3. VANCOMYCIN [Suspect]
     Indication: STAPHYLOCOCCAL SEPSIS
  4. CUROSURF (PHOSPHOLIPIDFRACTION, PORCINE LUNG, SODIUM CHLORIDE) [Concomitant]

REACTIONS (4)
  - ERYTHEMA [None]
  - JOINT SWELLING [None]
  - OXYGEN SATURATION DECREASED [None]
  - SKIN SWELLING [None]
